FAERS Safety Report 17520889 (Version 8)
Quarter: 2020Q4

REPORT INFORMATION
  Report Type: Report from Study
  Country: TW (occurrence: TW)
  Receive Date: 20200310
  Receipt Date: 20201120
  Transmission Date: 20210113
  Serious: Yes (Hospitalization, Other)
  Sender: FDA-Public Use
  Company Number: NVSC2020TW064938

PATIENT
  Age: 84 Year
  Sex: Male
  Weight: 63 kg

DRUGS (10)
  1. PLAVIX [Concomitant]
     Active Substance: CLOPIDOGREL BISULFATE
     Indication: MYOCARDIAL INFARCTION
     Dosage: 75 MG, QD
     Route: 048
     Dates: start: 20190404, end: 20200305
  2. SACUBITRIL,VALSARTAN [Suspect]
     Active Substance: SACUBITRIL\VALSARTAN
     Indication: ACUTE MYOCARDIAL INFARCTION
     Dosage: 200 MG, BID
     Route: 048
     Dates: start: 20190409, end: 20200305
  3. SACUBITRIL,VALSARTAN [Suspect]
     Active Substance: SACUBITRIL\VALSARTAN
     Dosage: 200 MG, BID
     Route: 048
     Dates: start: 20200903
  4. BOKEY [Concomitant]
     Indication: MYOCARDIAL INFARCTION
     Dosage: 100 MG, QD
     Route: 048
     Dates: start: 20190404, end: 20200305
  5. THROUGH [Concomitant]
     Indication: CONSTIPATION
     Dosage: 40 MG, QD
     Route: 048
     Dates: start: 20190411, end: 20200305
  6. SPIROTONE [Concomitant]
     Indication: CARDIAC FAILURE
     Dosage: 13 MG, QD
     Route: 048
     Dates: start: 20190410, end: 20200305
  7. LIPITOR [Concomitant]
     Active Substance: ATORVASTATIN CALCIUM
     Indication: DYSLIPIDAEMIA
     Dosage: 20 MG, QD
     Route: 048
     Dates: start: 20190408, end: 20200305
  8. CONCOR 5 PLUS [Concomitant]
     Indication: PROPHYLAXIS
     Dosage: 3 MG, QD
     Route: 048
     Dates: start: 20190422, end: 20200305
  9. RASITOL [Concomitant]
     Indication: CARDIAC FAILURE
     Dosage: 20 MG, QOD
     Route: 048
     Dates: start: 20190422
  10. DULCOLAX NOS [Concomitant]
     Active Substance: BISACODYL OR DOCUSATE SODIUM
     Indication: CONSTIPATION
     Dosage: 5 MG, QD
     Route: 048
     Dates: start: 20190415, end: 20200305

REACTIONS (1)
  - Hepatitis [Recovered/Resolved]

NARRATIVE: CASE EVENT DATE: 20200305
